FAERS Safety Report 8806658 (Version 1)
Quarter: 2012Q4

REPORT INFORMATION
  Report Type: Spontaneous
  Country: US (occurrence: None)
  Receive Date: 20120920
  Receipt Date: 20120920
  Transmission Date: 20130627
  Serious: Yes (Hospitalization)
  Sender: FDA-Public Use
  Company Number: None

PATIENT
  Age: 67 Year
  Sex: Female
  Weight: 69.5 kg

DRUGS (8)
  1. ISENTRESS [Suspect]
     Dosage: Isentress 400mg 1 po bid Oral 047
     Route: 048
     Dates: start: 20120709, end: 20120824
  2. DIPHENHYDRAMINE [Concomitant]
  3. PRILOSEC [Concomitant]
  4. DIOVAN HCT [Concomitant]
  5. OSCAL [Concomitant]
  6. B12 [Concomitant]
  7. MYCLEX TROCHE [Concomitant]
  8. KALETRA [Concomitant]

REACTIONS (5)
  - Eosinophilia [None]
  - Liver function test abnormal [None]
  - Hypersensitivity [None]
  - Aspartate aminotransferase increased [None]
  - Alanine aminotransferase increased [None]
